FAERS Safety Report 5329916-9 (Version None)
Quarter: 2007Q2

REPORT INFORMATION
  Report Type: 
  Country: None (occurrence: None)
  Receive Date: 20070521
  Receipt Date: 20070512
  Transmission Date: 20071010
  Serious: Yes (Other)
  Sender: FDA-Public Use
  Company Number: US-JNJFOC-20070503627

PATIENT
  Age: 46 Year
  Sex: Female
  Weight: 113.4 kg

DRUGS (2)
  1. IMODIUM A-D [Suspect]
     Route: 048
  2. IMODIUM A-D [Suspect]
     Indication: DIARRHOEA
     Dosage: 2 DOSES FOR A TOTAL OF 3 CAPLETS
     Route: 048

REACTIONS (8)
  - BACK PAIN [None]
  - DRUG INEFFECTIVE [None]
  - GASTROINTESTINAL PAIN [None]
  - HAEMATOCHEZIA [None]
  - MALAISE [None]
  - PYREXIA [None]
  - SLEEP DISORDER [None]
  - VOMITING [None]
